FAERS Safety Report 16041132 (Version 1)
Quarter: 2019Q1

REPORT INFORMATION
  Report Type: Spontaneous
  Country: US (occurrence: US)
  Receive Date: 20190306
  Receipt Date: 20190306
  Transmission Date: 20190418
  Serious: No
  Sender: FDA-Public Use
  Company Number: US-AKORN PHARMACEUTICALS-2018AKN01128

PATIENT
  Age: 17 Year
  Sex: Female
  Weight: 61.22 kg

DRUGS (7)
  1. NEXPLANON [Concomitant]
     Active Substance: ETONOGESTREL
  2. MYORISAN [Suspect]
     Active Substance: ISOTRETINOIN
     Indication: ACNE CYSTIC
     Dosage: 10 MG, 1X/DAY
     Dates: start: 20180605, end: 201806
  3. MYORISAN [Suspect]
     Active Substance: ISOTRETINOIN
     Indication: SCAR
  4. MYORISAN [Suspect]
     Active Substance: ISOTRETINOIN
     Indication: SCAR
  5. MYORISAN [Suspect]
     Active Substance: ISOTRETINOIN
     Indication: SCAR
  6. MYORISAN [Suspect]
     Active Substance: ISOTRETINOIN
     Indication: ACNE CYSTIC
     Dosage: 20 MG, 1X/DAY
     Route: 048
     Dates: start: 20180130, end: 20180227
  7. MYORISAN [Suspect]
     Active Substance: ISOTRETINOIN
     Indication: ACNE CYSTIC
     Dosage: 40 MG, 1X/DAY
     Route: 048
     Dates: start: 20180227, end: 20180427

REACTIONS (5)
  - Off label use [Recovered/Resolved]
  - Angioedema [Recovered/Resolved]
  - Mechanical urticaria [Recovered/Resolved]
  - Urticaria [Recovered/Resolved]
  - Rash [Recovered/Resolved]

NARRATIVE: CASE EVENT DATE: 2018
